FAERS Safety Report 5390074-6 (Version None)
Quarter: 2007Q3

REPORT INFORMATION
  Report Type: 
  Country: None (occurrence: None)
  Receive Date: 20070718
  Receipt Date: 20070711
  Transmission Date: 20080115
  Serious: Yes (Other)
  Sender: FDA-Public Use
  Company Number: A0654367A

PATIENT
  Sex: Male
  Weight: 3.6 kg

DRUGS (2)
  1. ZIDOVUDINE [Suspect]
     Indication: HIV INFECTION
     Dates: start: 20070605, end: 20070605
  2. ATRIPLA [Concomitant]
     Indication: HIV INFECTION
     Dosage: 1100MG PER DAY
     Dates: start: 20061128, end: 20070604

REACTIONS (2)
  - DRUG EXPOSURE DURING PREGNANCY [None]
  - MELANOCYTIC NAEVUS [None]
